FAERS Safety Report 5374212-7 (Version None)
Quarter: 2007Q2

REPORT INFORMATION
  Report Type: 
  Country: None (occurrence: None)
  Receive Date: 20070627
  Receipt Date: 20060706
  Transmission Date: 20071010
  Serious: Yes (Hospitalization)
  Sender: FDA-Public Use
  Company Number: 454587

PATIENT
  Age: 79 Year
  Sex: Female
  Weight: 49 kg

DRUGS (3)
  1. XELODA [Suspect]
     Indication: BILIARY CANCER METASTATIC
     Dosage: 2150 MG DAILY 2 PER DAY ORAL
     Route: 048
     Dates: start: 20051220
  2. ATENOLOL [Concomitant]
  3. LISINORPIL (LISINOPRIL) [Concomitant]

REACTIONS (1)
  - PULMONARY EMBOLISM [None]
